FAERS Safety Report 9725325 (Version 2)
Quarter: 2014Q2

REPORT INFORMATION
  Report Type: Spontaneous
  Country: US (occurrence: None)
  Receive Date: 20131129
  Receipt Date: 20140501
  Transmission Date: 20141212
  Serious: Yes (Other)
  Sender: FDA-Public Use
  Company Number: 2013-US-003568

PATIENT
  Age: 45 Year
  Sex: Female
  Weight: 76.2 kg

DRUGS (2)
  1. XYREM [Suspect]
     Indication: HYPERSOMNIA
     Dosage: 2.25 G, BID, ORAL
     Route: 048
     Dates: start: 201004, end: 2010
  2. METHOTREXATE [Suspect]
     Indication: PRODUCT USED FOR UNKNOWN INDICATION

REACTIONS (16)
  - Renal surgery [None]
  - Hysterectomy [None]
  - Spinal fusion surgery [None]
  - Osteoma [None]
  - Exostosis [None]
  - Jaw operation [None]
  - Foot operation [None]
  - Fall [None]
  - Hand fracture [None]
  - Ligament sprain [None]
  - Face injury [None]
  - Dizziness [None]
  - Vomiting [None]
  - Memory impairment [None]
  - Hysterectomy [None]
  - Off label use [None]
